FAERS Safety Report 17269671 (Version 1)
Quarter: 2020Q1

REPORT INFORMATION
  Report Type: Report from Study
  Country: IL (occurrence: IL)
  Receive Date: 20200114
  Receipt Date: 20200114
  Transmission Date: 20200409
  Serious: Yes (Hospitalization, Other)
  Sender: FDA-Public Use
  Company Number: IL-SHIRE-IL201927699

PATIENT

DRUGS (3)
  1. VELAGLUCERASE ALFA [Suspect]
     Active Substance: VELAGLUCERASE ALFA
     Dosage: UNK, 1X/2WKS 3/2 VIALS TOTAL OF 5 VIALS PER MONTH, 1200/800 UNITS A TOLTAL OF 2000 UNITS PER MONTH
     Route: 065
     Dates: start: 20191120
  2. CEREZYME [Concomitant]
     Active Substance: IMIGLUCERASE
     Indication: PRODUCT USED FOR UNKNOWN INDICATION
  3. VELAGLUCERASE ALFA [Suspect]
     Active Substance: VELAGLUCERASE ALFA
     Indication: GAUCHER^S DISEASE
     Dosage: UNK, 1X/2WKS 3/2 VIALS TOTAL OF 5 VIALS PER MONTH, 1200/800 UNITS A TOLTAL OF 2000 UNITS PER MONTH
     Route: 065
     Dates: start: 20120119

REACTIONS (3)
  - Premature labour [Recovered/Resolved]
  - Foetal growth restriction [Recovered/Resolved]
  - Maternal exposure during breast feeding [Unknown]
